FAERS Safety Report 15778609 (Version 1)
Quarter: 2018Q4

REPORT INFORMATION
  Report Type: Report from Study
  Country: US (occurrence: US)
  Receive Date: 20181231
  Receipt Date: 20181231
  Transmission Date: 20190205
  Serious: Yes (Hospitalization)
  Sender: FDA-Public Use
  Company Number: US-ACTELION-A-US2018-184320

PATIENT
  Age: 65 Year
  Sex: Female
  Weight: 78.5 kg

DRUGS (1)
  1. VELETRI [Suspect]
     Active Substance: EPOPROSTENOL
     Indication: PULMONARY ARTERIAL HYPERTENSION
     Dosage: 34.03 NG/KG, PER MIN
     Route: 042

REACTIONS (7)
  - Dehydration [Unknown]
  - Diarrhoea [Unknown]
  - Rectal haemorrhage [Unknown]
  - Decreased appetite [Unknown]
  - Fatigue [Unknown]
  - Oedema peripheral [Unknown]
  - Abdominal distension [Unknown]
